FAERS Safety Report 5800329-6 (Version None)
Quarter: 2008Q3

REPORT INFORMATION
  Report Type: 
  Country: None (occurrence: None)
  Receive Date: 20080703
  Receipt Date: 20080319
  Transmission Date: 20090109
  Serious: No
  Sender: FDA-Public Use
  Company Number: A0716455A

PATIENT
  Age: 6 Year
  Sex: Female

DRUGS (4)
  1. ADVAIR DISKUS 100/50 [Suspect]
     Indication: ASTHMA
     Dosage: 2PUFF TWICE PER DAY
     Route: 055
     Dates: start: 20071201
  2. ALBUTEROL [Concomitant]
  3. UNKNOWN MEDICATION [Concomitant]
  4. XOPENEX [Concomitant]

REACTIONS (1)
  - TOOTH EROSION [None]
